FAERS Safety Report 4565562-2 (Version None)
Quarter: 2005Q1

REPORT INFORMATION
  Report Type: 
  Country: None (occurrence: None)
  Receive Date: 20050126
  Receipt Date: 20050110
  Transmission Date: 20050727
  Serious: Yes (Hospitalization, Other)
  Sender: FDA-Public Use
  Company Number: USA050188021

PATIENT
  Age: 65 Year
  Sex: Male

DRUGS (1)
  1. ZYPREXA [Suspect]
     Indication: MIGRAINE
     Dates: start: 20030101

REACTIONS (2)
  - CORONARY ARTERY SURGERY [None]
  - HICCUPS [None]
